FAERS Safety Report 25955296 (Version 1)
Quarter: 2025Q4

REPORT INFORMATION
  Report Type: Report from Study
  Country: US (occurrence: US)
  Receive Date: 20251024
  Receipt Date: 20251024
  Transmission Date: 20260117
  Serious: Yes (Death, Hospitalization, Other)
  Sender: IPSEN BIOPHARMACEUTICALS, INC.
  Company Number: US-IPSEN Group, Research and Development-2023-22756

PATIENT
  Age: 74 Year
  Sex: Female
  Weight: 119 kg

DRUGS (3)
  1. IRINOTECAN SUCROSOFATE [Suspect]
     Active Substance: IRINOTECAN SUCROSOFATE
     Indication: Adenocarcinoma pancreas
     Dates: start: 20230912, end: 20230912
  2. LEUCOVORIN CALCIUM [Suspect]
     Active Substance: LEUCOVORIN CALCIUM
     Indication: Adenocarcinoma pancreas
     Dates: start: 20230912, end: 20230912
  3. FLUOROURACIL [Suspect]
     Active Substance: FLUOROURACIL
     Indication: Adenocarcinoma pancreas
     Dates: start: 20230912, end: 20230914

REACTIONS (9)
  - Death [Fatal]
  - Febrile neutropenia [Not Recovered/Not Resolved]
  - Neutrophil count decreased [Not Recovered/Not Resolved]
  - Muscular weakness [Not Recovered/Not Resolved]
  - Hypokalaemia [Not Recovered/Not Resolved]
  - Asthenia [Not Recovered/Not Resolved]
  - Hypotension [Not Recovered/Not Resolved]
  - Confusional state [Not Recovered/Not Resolved]
  - Decreased appetite [Not Recovered/Not Resolved]

NARRATIVE: CASE EVENT DATE: 20230925
